FAERS Safety Report 6013882-7 (Version None)
Quarter: 2008Q4

REPORT INFORMATION
  Report Type: 
  Country: None (occurrence: None)
  Receive Date: 20081219
  Receipt Date: 20081212
  Transmission Date: 20090506
  Serious: Yes (Other)
  Sender: FDA-Public Use
  Company Number: US-ELI_LILLY_AND_COMPANY-US200809002112

PATIENT
  Sex: Male

DRUGS (3)
  1. HUMALOG [Suspect]
     Route: 058
  2. ENALAPRIL MALEATE [Concomitant]
     Dosage: 5 MG, UNK
  3. SIMVASTATIN [Concomitant]
     Dosage: 40 MG, DAILY (1/D)

REACTIONS (3)
  - BLOOD GLUCOSE INCREASED [None]
  - DIABETIC HYPERGLYCAEMIC COMA [None]
  - FATIGUE [None]
